FAERS Safety Report 15783512 (Version 1)
Quarter: 2019Q1

REPORT INFORMATION
  Report Type: Spontaneous
  Country: GB (occurrence: GB)
  Receive Date: 20190102
  Receipt Date: 20190102
  Transmission Date: 20190417
  Serious: Yes (Hospitalization)
  Sender: FDA-Public Use
  Company Number: GB-MYLANLABS-2018M1097238

PATIENT
  Age: 68 Year
  Sex: Male

DRUGS (14)
  1. FUROSEMIDE. [Concomitant]
     Active Substance: FUROSEMIDE
  2. TAMSULOSIN [Concomitant]
     Active Substance: TAMSULOSIN
  3. OXYCODONE [Concomitant]
     Active Substance: OXYCODONE
  4. BISOPROLOL [Concomitant]
     Active Substance: BISOPROLOL
  5. FINASTERIDE. [Concomitant]
     Active Substance: FINASTERIDE
     Dosage: UNK
  6. FOLIC ACID. [Concomitant]
     Active Substance: FOLIC ACID
  7. GABAPENTIN. [Concomitant]
     Active Substance: GABAPENTIN
  8. EFUDIX [Suspect]
     Active Substance: FLUOROURACIL
     Indication: SQUAMOUS CELL CARCINOMA
     Dosage: 2 DOSAGE FORM, QD
     Route: 061
     Dates: start: 20180517, end: 20180607
  9. GLICLAZIDE [Concomitant]
     Active Substance: GLICLAZIDE
  10. METHOTREXATE. [Concomitant]
     Active Substance: METHOTREXATE
  11. TIOTROPIUM [Concomitant]
     Active Substance: TIOTROPIUM
  12. SYMBICORT [Concomitant]
     Active Substance: BUDESONIDE\FORMOTEROL FUMARATE DIHYDRATE
  13. METFORMIN [Concomitant]
     Active Substance: METFORMIN HYDROCHLORIDE
  14. CANDESARTAN. [Concomitant]
     Active Substance: CANDESARTAN

REACTIONS (4)
  - Scab [Unknown]
  - Skin burning sensation [Unknown]
  - Cellulitis [Unknown]
  - Erythema [Unknown]

NARRATIVE: CASE EVENT DATE: 20180607
